FAERS Safety Report 22244175 (Version 1)
Quarter: 2023Q2

REPORT INFORMATION
  Report Type: Spontaneous
  Country: US (occurrence: US)
  Receive Date: 20230424
  Receipt Date: 20230424
  Transmission Date: 20230721
  Serious: Yes (Hospitalization)
  Sender: FDA-Public Use
  Company Number: US-ORG100016242-2023000122

PATIENT
  Age: 59 Year
  Sex: Female

DRUGS (3)
  1. BUPIVACAINE [Suspect]
     Active Substance: BUPIVACAINE
     Indication: General anaesthesia
     Route: 050
  2. BUPIVACAINE [Suspect]
     Active Substance: BUPIVACAINE
     Indication: General anaesthesia
     Route: 050
  3. DEXAMETHASONE [Concomitant]
     Active Substance: DEXAMETHASONE
     Indication: General anaesthesia
     Route: 050

REACTIONS (2)
  - Phrenic nerve injury [Recovered/Resolved with Sequelae]
  - Labelled drug-drug interaction medication error [Unknown]
